FAERS Safety Report 23815977 (Version 3)
Quarter: 2024Q3

REPORT INFORMATION
  Report Type: Spontaneous
  Country: GB (occurrence: GB)
  Receive Date: 20240503
  Receipt Date: 20240703
  Transmission Date: 20241016
  Serious: Yes (Death, Hospitalization)
  Sender: DAIICHI
  Company Number: GB-DSJP-DSE-2024-113795

PATIENT
  Age: 51 Year
  Sex: Female
  Weight: 103.8 kg

DRUGS (3)
  1. ENHERTU [Suspect]
     Active Substance: FAM-TRASTUZUMAB DERUXTECAN-NXKI
     Indication: HER2 positive breast cancer
     Dosage: 320 MG, ONCE EVERY 3 WK
     Route: 065
     Dates: start: 20240201, end: 20240201
  2. ENHERTU [Suspect]
     Active Substance: FAM-TRASTUZUMAB DERUXTECAN-NXKI
     Indication: Breast cancer metastatic
  3. DEXAMETHASONE [Concomitant]
     Active Substance: DEXAMETHASONE
     Indication: Metastases to central nervous system
     Dosage: 8 MG (WEANING DOSE)
     Route: 065
     Dates: start: 20231220, end: 20240201

REACTIONS (5)
  - Interstitial lung disease [Fatal]
  - Pneumocystis jirovecii pneumonia [Fatal]
  - Hypothyroidism [Fatal]
  - Disease progression [Fatal]
  - Diarrhoea [Unknown]

NARRATIVE: CASE EVENT DATE: 20240206
